FAERS Safety Report 9502955 (Version 1)
Quarter: 2013Q3

REPORT INFORMATION
  Report Type: Report from Study
  Country: US (occurrence: US)
  Receive Date: 20130906
  Receipt Date: 20130906
  Transmission Date: 20140515
  Serious: Yes (Other)
  Sender: FDA-Public Use
  Company Number: PHEH2013US018621

PATIENT
  Sex: Female

DRUGS (2)
  1. EXELON PATCH [Suspect]
     Indication: DEMENTIA ALZHEIMER^S TYPE
     Dosage: PATCH 10 (CM)2, DAILY
     Route: 062
     Dates: start: 20130515
  2. METAMUCIL [Suspect]
     Indication: INTESTINAL OBSTRUCTION

REACTIONS (1)
  - Intestinal obstruction [Not Recovered/Not Resolved]
